FAERS Safety Report 6410544-9 (Version None)
Quarter: 2009Q4

REPORT INFORMATION
  Report Type: 
  Country: None (occurrence: None)
  Receive Date: 20091022
  Receipt Date: 20091013
  Transmission Date: 20100525
  Serious: Yes (Hospitalization)
  Sender: FDA-Public Use
  Company Number: FR-BRISTOL-MYERS SQUIBB COMPANY-14824007

PATIENT
  Age: 72 Year
  Sex: Female

DRUGS (3)
  1. ERBITUX [Suspect]
     Indication: COLON CANCER METASTATIC
     Dosage: ON 13JUN08 300MG/M2 (465MG); BEFORE13JUN08-UNK:HIGHER DOSE THAN LAST COURSE
     Route: 042
     Dates: start: 20080613, end: 20080613
  2. ELOXATIN [Suspect]
     Indication: COLON CANCER METASTATIC
     Dosage: SOLN FOR INJECTION;ON 13JUN08 60MG/M2 (93MG); BEFORE13JUN08-UNK:HIGHER DOSE THAN LAST COURSE
     Route: 042
     Dates: start: 20080613, end: 20080613
  3. FLUOROURACIL [Suspect]
     Indication: COLON CANCER METASTATIC
     Dosage: SOLN FOR INJECTION; ON 13JUN08 1600MG/M2 (2475MG); BEFORE13JUN08-UNK:HIGHER DOSE THAN LAST COURSE
     Route: 042
     Dates: start: 20080613, end: 20080613

REACTIONS (3)
  - DIARRHOEA [None]
  - ELECTROLYTE IMBALANCE [None]
  - VOMITING [None]
